FAERS Safety Report 24242395 (Version 1)
Quarter: 2024Q3

REPORT INFORMATION
  Report Type: Spontaneous
  Country: US (occurrence: US)
  Receive Date: 20240823
  Receipt Date: 20240823
  Transmission Date: 20241016
  Serious: No
  Sender: APOTEX
  Company Number: US-APOTEX-2023AP016526

PATIENT
  Age: 75 Year
  Sex: Male

DRUGS (6)
  1. TEMOZOLOMIDE [Suspect]
     Active Substance: TEMOZOLOMIDE
     Indication: Isocitrate dehydrogenase gene mutation
     Dosage: 50 MILLIGRAM/SQ. METER, QD (THERAPY DURATION: 10.2 MONTHS)
     Route: 065
  2. TEMOZOLOMIDE [Suspect]
     Active Substance: TEMOZOLOMIDE
     Indication: Glioblastoma
     Dosage: 25 MILLIGRAM/SQ. METER, QD (THERAPY DURATION: 10.2 MONTHS)
     Route: 065
  3. OLAPARIB [Suspect]
     Active Substance: OLAPARIB
     Indication: Glioblastoma
     Dosage: 150 MILLIGRAM, T.I.W (THERAPY DURATION: 10.2 MONTHS)
     Route: 065
  4. OLAPARIB [Suspect]
     Active Substance: OLAPARIB
     Indication: Isocitrate dehydrogenase gene mutation
     Dosage: 150 MILLIGRAM, QD (THERAPY DURATION: 10.2 MONTHS)
     Route: 065
  5. VELIPARIB [Suspect]
     Active Substance: VELIPARIB
     Indication: Isocitrate dehydrogenase gene mutation
     Dosage: UNK (THERAPY DURATION: 10.2 MONTHS)
     Route: 065
  6. VELIPARIB [Suspect]
     Active Substance: VELIPARIB
     Indication: Glioblastoma

REACTIONS (3)
  - Toxicity to various agents [Unknown]
  - Constipation [Unknown]
  - Fatigue [Unknown]
